FAERS Safety Report 6035149-3 (Version None)
Quarter: 2009Q1

REPORT INFORMATION
  Report Type: 
  Country: None (occurrence: None)
  Receive Date: 20090112
  Receipt Date: 20090108
  Transmission Date: 20090719
  Serious: Yes (Hospitalization)
  Sender: FDA-Public Use
  Company Number: US-B.I. PHARMACEUTICALS,INC./RIDGEFIELD-2009-BP-00253BP

PATIENT
  Sex: Female

DRUGS (10)
  1. SPIRIVA [Suspect]
     Indication: CHRONIC OBSTRUCTIVE PULMONARY DISEASE
     Dosage: 18MCG
     Route: 055
     Dates: start: 20080601
  2. OXYGEN [Concomitant]
  3. ADVAIR DISKUS 250/50 [Concomitant]
  4. COUMADIN [Concomitant]
  5. THYROID MEDICATION [Concomitant]
     Indication: THYROID DISORDER
  6. LIPITOR [Concomitant]
  7. WATER PILL [Concomitant]
  8. POTASSIUM CHLORIDE [Concomitant]
  9. DIGOXIN [Concomitant]
     Indication: ATRIAL FIBRILLATION
  10. CARDIZEM [Concomitant]
     Indication: CARDIOVASCULAR EVENT PROPHYLAXIS

REACTIONS (2)
  - DYSPNOEA [None]
  - PNEUMONIA [None]
